FAERS Safety Report 24540649 (Version 1)
Quarter: 2024Q4

REPORT INFORMATION
  Report Type: Report from Study
  Country: KR (occurrence: KR)
  Receive Date: 20241023
  Receipt Date: 20241023
  Transmission Date: 20250115
  Serious: Yes (Other)
  Sender: JOHNSON AND JOHNSON
  Company Number: KR-JNJFOC-20230643287

PATIENT
  Age: 56 Year
  Sex: Female

DRUGS (2)
  1. LAZERTINIB [Suspect]
     Active Substance: LAZERTINIB
     Indication: Non-small cell lung cancer
     Route: 048
     Dates: start: 20220718, end: 20231210
  2. OSIMERTINIB [Concomitant]
     Active Substance: OSIMERTINIB
     Dates: start: 20231211

REACTIONS (2)
  - Neuropathy peripheral [Recovering/Resolving]
  - Dermatitis [Recovering/Resolving]

NARRATIVE: CASE EVENT DATE: 20220808
